FAERS Safety Report 21650641 (Version 1)
Quarter: 2022Q4

REPORT INFORMATION
  Report Type: Spontaneous
  Country: US (occurrence: None)
  Receive Date: 20221123
  Receipt Date: 20221123
  Transmission Date: 20230113
  Serious: No
  Sender: FDA-Public Use
  Company Number: None

PATIENT
  Age: 55 Year
  Sex: Female

DRUGS (1)
  1. TACROLIMUS [Suspect]
     Active Substance: TACROLIMUS
     Dosage: OTHER QUANTITY : 4MG AM AND 3AM PM;?FREQUENCY : TWICE A DAY;?
     Route: 048
     Dates: start: 202201

REACTIONS (2)
  - Post transplant lymphoproliferative disorder [None]
  - Lymphoma [None]

NARRATIVE: CASE EVENT DATE: 20221123
